FAERS Safety Report 13552883 (Version 1)
Quarter: 2017Q2

REPORT INFORMATION
  Report Type: Spontaneous
  Country: US (occurrence: US)
  Receive Date: 20170516
  Receipt Date: 20170516
  Transmission Date: 20170830
  Serious: No
  Sender: FDA-Public Use
  Company Number: None

PATIENT
  Age: 80 Year
  Sex: Female
  Weight: 65.83 kg

DRUGS (1)
  1. METHYLPHENIDATE 10MG [Suspect]
     Active Substance: METHYLPHENIDATE
     Indication: DISTURBANCE IN ATTENTION
     Route: 048
     Dates: start: 20130112, end: 20150118

REACTIONS (2)
  - Drug ineffective [None]
  - Product substitution issue [None]
